FAERS Safety Report 5686875-7 (Version None)
Quarter: 2008Q1

REPORT INFORMATION
  Report Type: 
  Country: None (occurrence: None)
  Receive Date: 20080328
  Receipt Date: 20070611
  Transmission Date: 20080703
  Serious: No
  Sender: FDA-Public Use
  Company Number: US-BAYER-US-2007-021990

PATIENT
  Sex: Female
  Weight: 71 kg

DRUGS (2)
  1. MIRENA [Suspect]
     Indication: CONTRACEPTION
     Route: 015
     Dates: start: 20051201
  2. VITAMINS [Concomitant]

REACTIONS (3)
  - FATIGUE [None]
  - MYALGIA [None]
  - NECK PAIN [None]
